FAERS Safety Report 19665252 (Version 2)
Quarter: 2021Q3

REPORT INFORMATION
  Report Type: Spontaneous
  Country: US (occurrence: US)
  Receive Date: 20210805
  Receipt Date: 20210805
  Transmission Date: 20211014
  Serious: No
  Sender: FDA-Public Use
  Company Number: US-ROCHE-2810701

PATIENT
  Age: 60 Year
  Sex: Female

DRUGS (1)
  1. GAVRETO [Suspect]
     Active Substance: PRALSETINIB
     Indication: LUNG NEOPLASM MALIGNANT
     Dosage: TAKE 4 CAPSULES (400 MG TOTAL) DAILY, 3 CAPSULES (300MG TOTAL) DAILY
     Route: 048
     Dates: start: 20201130

REACTIONS (1)
  - Fatigue [Not Recovered/Not Resolved]

NARRATIVE: CASE EVENT DATE: 20201130
